FAERS Safety Report 18281412 (Version 1)
Quarter: 2020Q3

REPORT INFORMATION
  Report Type: Spontaneous
  Country: US (occurrence: US)
  Receive Date: 20200917
  Receipt Date: 20200917
  Transmission Date: 20201103
  Serious: No
  Sender: FDA-Public Use
  Company Number: None

PATIENT
  Age: 34 Year
  Sex: Female
  Weight: 68.95 kg

DRUGS (2)
  1. IUD NOS [Suspect]
     Active Substance: COPPER OR LEVONORGESTREL
  2. KYLEENA [Suspect]
     Active Substance: LEVONORGESTREL
     Dates: start: 20200811

REACTIONS (1)
  - Fungal infection [None]

NARRATIVE: CASE EVENT DATE: 20200917
